FAERS Safety Report 16982721 (Version 5)
Quarter: 2020Q4

REPORT INFORMATION
  Report Type: Other
  Country: US (occurrence: US)
  Receive Date: 20191101
  Receipt Date: 20201119
  Transmission Date: 20210113
  Serious: Yes (Hospitalization, Other)
  Sender: FDA-Public Use
  Company Number: US-ROCHE-2445205

PATIENT
  Age: 47 Year
  Sex: Female
  Weight: 74.91 kg

DRUGS (7)
  1. GABAPENTIN. [Concomitant]
     Active Substance: GABAPENTIN
     Indication: NEURALGIA
     Dosage: 3 PIILS
     Route: 048
  2. BACLOFEN. [Concomitant]
     Active Substance: BACLOFEN
  3. VITAMIN D3 [Concomitant]
     Active Substance: CHOLECALCIFEROL
     Route: 048
  4. OCREVUS [Suspect]
     Active Substance: OCRELIZUMAB
     Indication: RELAPSING-REMITTING MULTIPLE SCLEROSIS
     Dosage: SUBSEQUENT DOSES RECEIVED ON: 24/OCT/2019
     Route: 042
     Dates: start: 201810
  5. ELIQUIS [Concomitant]
     Active Substance: APIXABAN
     Indication: THROMBOSIS
     Route: 048
  6. ESCITALOPRAM [Concomitant]
     Active Substance: ESCITALOPRAM OXALATE
     Indication: ANXIETY
     Route: 048
  7. OCREVUS [Suspect]
     Active Substance: OCRELIZUMAB
     Indication: RELAPSING MULTIPLE SCLEROSIS
     Route: 042
     Dates: start: 20190417, end: 20200513

REACTIONS (4)
  - Drug ineffective [Unknown]
  - Urinary tract infection [Unknown]
  - Weight increased [Not Recovered/Not Resolved]
  - Thrombosis [Recovered/Resolved]

NARRATIVE: CASE EVENT DATE: 201810
